FAERS Safety Report 6587680-X (Version None)
Quarter: 2010Q1

REPORT INFORMATION
  Report Type: 
  Country: None (occurrence: None)
  Receive Date: 20100217
  Receipt Date: 20100217
  Transmission Date: 20100710
  Serious: No
  Sender: FDA-Public Use
  Company Number: None

PATIENT
  Age: 40 Year
  Sex: Female

DRUGS (6)
  1. METOCLOPRAMIDE [Suspect]
     Indication: NAUSEA
     Dosage: 10 MG Q8H PO
     Route: 048
     Dates: start: 20091209, end: 20091210
  2. METOCLOPRAMIDE [Suspect]
     Indication: VOMITING
     Dosage: 10 MG Q8H PO
     Route: 048
     Dates: start: 20091209, end: 20091210
  3. ASPIRIN [Concomitant]
  4. LOSARTAN POTASSIUM [Concomitant]
  5. SOLU-MEDROL [Concomitant]
  6. ATRIPLA [Concomitant]

REACTIONS (3)
  - DYSTONIA [None]
  - NECK PAIN [None]
  - SPEECH DISORDER [None]
